FAERS Safety Report 7497252-0 (Version None)
Quarter: 2011Q2

REPORT INFORMATION
  Report Type: 
  Country: None (occurrence: None)
  Receive Date: 20110523
  Receipt Date: 20110509
  Transmission Date: 20111010
  Serious: Yes (Other)
  Sender: FDA-Public Use
  Company Number: PHHY2009CA59798

PATIENT
  Sex: Male

DRUGS (4)
  1. ALISKIREN [Suspect]
     Dosage: 150 MG, UNK
     Route: 065
  2. DIURETICS [Concomitant]
  3. CALCIUM CHANNEL BLOCKERS [Concomitant]
  4. ANGIOTENSIN II ANTAGONISTS [Concomitant]

REACTIONS (5)
  - RENAL IMPAIRMENT [None]
  - HYPERTENSION [None]
  - URINE ALBUMIN/CREATININE RATIO INCREASED [None]
  - DIABETES MELLITUS [None]
  - BLOOD CREATININE INCREASED [None]
